FAERS Safety Report 24604328 (Version 1)
Quarter: 2024Q4

REPORT INFORMATION
  Report Type: Spontaneous
  Country: US (occurrence: US)
  Receive Date: 20241111
  Receipt Date: 20241111
  Transmission Date: 20250115
  Serious: No
  Sender: PFIZER
  Company Number: US-SEATTLE GENETICS-2024SGN04098

PATIENT
  Age: 65 Year
  Sex: Female

DRUGS (3)
  1. TUKYSA [Suspect]
     Active Substance: TUCATINIB
     Dosage: 150 MG
  2. TUKYSA [Suspect]
     Active Substance: TUCATINIB
     Dosage: TWO 150MG TABLETS BY MOUTH, TWICE A DAY
     Route: 048
     Dates: start: 202402, end: 20240403
  3. TUKYSA [Suspect]
     Active Substance: TUCATINIB
     Dosage: UNK
     Dates: start: 20241105

REACTIONS (1)
  - No adverse event [Unknown]

NARRATIVE: CASE EVENT DATE: 20240403
